FAERS Safety Report 8252370-4 (Version None)
Quarter: 2012Q2

REPORT INFORMATION
  Report Type: 
  Country: None (occurrence: None)
  Receive Date: 20120402
  Receipt Date: 20110527
  Transmission Date: 20120825
  Serious: No
  Sender: FDA-Public Use
  Company Number: US-ABBOTT-11P-163-0804617-00

PATIENT
  Sex: Male

DRUGS (1)
  1. TESTOSTERONE [Suspect]
     Indication: BLOOD TESTOSTERONE DECREASED
     Dosage: DAILY DOSE:  UNKNOWN, FORM STRENGTH: 1 PERCENT
     Route: 062

REACTIONS (4)
  - TESTICULAR PAIN [None]
  - HOT FLUSH [None]
  - PERINEAL PAIN [None]
  - BODY TEMPERATURE INCREASED [None]
